FAERS Safety Report 9459329 (Version 1)
Quarter: 2013Q3

REPORT INFORMATION
  Report Type: Spontaneous
  Country: US (occurrence: US)
  Receive Date: 20130815
  Receipt Date: 20130815
  Transmission Date: 20140515
  Serious: No
  Sender: FDA-Public Use
  Company Number: US-009507513-1308USA005477

PATIENT
  Sex: Female

DRUGS (3)
  1. SAPHRIS [Suspect]
     Dosage: 5 MG, QD
     Route: 060
     Dates: start: 201306
  2. PROZAC [Concomitant]
  3. BUSPAR [Concomitant]

REACTIONS (5)
  - Joint stiffness [Unknown]
  - Hyperhidrosis [Unknown]
  - Musculoskeletal stiffness [Unknown]
  - Underdose [Unknown]
  - Inappropriate schedule of drug administration [Unknown]
